FAERS Safety Report 24981567 (Version 1)
Quarter: 2025Q1

REPORT INFORMATION
  Report Type: Report from Study
  Country: US (occurrence: US)
  Receive Date: 20250218
  Receipt Date: 20250218
  Transmission Date: 20250409
  Serious: Yes (Hospitalization)
  Sender: EISAI
  Company Number: US-Eisai-EC-2025-184210

PATIENT
  Age: 29 Year
  Sex: Male

DRUGS (5)
  1. LENVIMA [Suspect]
     Active Substance: LENVATINIB
     Indication: Renal cancer
     Dosage: LENVIMA PUT ON HOLD TILL  21-MAR-2024
     Dates: start: 20240203, end: 20240306
  2. LENVIMA [Suspect]
     Active Substance: LENVATINIB
     Dates: start: 20240322, end: 202404
  3. LENVIMA [Suspect]
     Active Substance: LENVATINIB
     Dates: start: 202404
  4. LENVIMA [Suspect]
     Active Substance: LENVATINIB
  5. KEYTRUDA [Concomitant]
     Active Substance: PEMBROLIZUMAB
     Indication: Renal cancer

REACTIONS (1)
  - Dyspnoea [Recovered/Resolved]

NARRATIVE: CASE EVENT DATE: 20240101
